FAERS Safety Report 4663966-0 (Version None)
Quarter: 2005Q2

REPORT INFORMATION
  Report Type: 
  Country: None (occurrence: None)
  Receive Date: 20050415
  Receipt Date: 20050316
  Transmission Date: 20051028
  Serious: Yes (Disabling, Other)
  Sender: FDA-Public Use
  Company Number: 200509228

PATIENT
  Age: 14 Year
  Sex: Male
  Weight: 49.6 kg

DRUGS (3)
  1. MONOCLATE-P [Suspect]
     Indication: FACTOR VIII DEFICIENCY
  2. RECOMBINATE [Suspect]
     Indication: FACTOR VIII DEFICIENCY
     Dosage: IV
     Route: 042
     Dates: start: 19920101
  3. BLOOD AND RELATED PRODUCTS [Concomitant]

REACTIONS (1)
  - HEPATITIS C POSITIVE [None]
